FAERS Safety Report 24430835 (Version 3)
Quarter: 2025Q1

REPORT INFORMATION
  Report Type: Spontaneous
  Country: ES (occurrence: ES)
  Receive Date: 20241014
  Receipt Date: 20250205
  Transmission Date: 20250409
  Serious: Yes (Hospitalization)
  Sender: AUROBINDO
  Company Number: ES-ROCHE-10000094044

PATIENT
  Age: 61 Year
  Sex: Male
  Weight: 75 kg

DRUGS (16)
  1. CARBOPLATIN [Suspect]
     Active Substance: CARBOPLATIN
     Indication: Non-small cell lung cancer metastatic
     Route: 042
     Dates: start: 20230615
  2. PEMETREXED [Suspect]
     Active Substance: PEMETREXED
     Indication: Non-small cell lung cancer metastatic
     Route: 042
     Dates: start: 20230615
  3. ATEZOLIZUMAB [Suspect]
     Active Substance: ATEZOLIZUMAB
     Indication: Non-small cell lung cancer metastatic
     Route: 042
  4. PEMBROLIZUMAB [Suspect]
     Active Substance: PEMBROLIZUMAB
     Route: 042
     Dates: start: 20230615
  5. VILANTEROL [Concomitant]
     Active Substance: VILANTEROL
     Indication: Chronic obstructive pulmonary disease
     Dosage: 55 MICROGRAM, ONCE A DAY
     Route: 045
     Dates: start: 20230530
  6. TAZOBACTAM [Concomitant]
     Active Substance: TAZOBACTAM
     Indication: Respiratory tract infection
     Route: 042
     Dates: start: 20240414
  7. FOLIC ACID [Concomitant]
     Active Substance: FOLIC ACID
     Indication: Vitamin B12 deficiency
     Dosage: 5 MILLIGRAM, ONCE A DAY (GIVEN FOR PROPHYLAXIS IS YES)
     Route: 048
     Dates: start: 20230523
  8. ALBUTEROL [Concomitant]
     Active Substance: ALBUTEROL
     Indication: Oropharyngeal pain
     Dates: start: 20240313
  9. PIPERACILLIN [Concomitant]
     Active Substance: PIPERACILLIN
     Indication: Respiratory tract infection
     Route: 042
     Dates: start: 20240414
  10. ACETAMINOPHEN [Concomitant]
     Active Substance: ACETAMINOPHEN
     Indication: Product used for unknown indication
     Route: 048
     Dates: start: 20230816
  11. ONDANSETRON [Concomitant]
     Active Substance: ONDANSETRON
     Indication: Product used for unknown indication
     Route: 042
     Dates: start: 20230615
  12. PREDNISONE [Concomitant]
     Active Substance: PREDNISONE
     Indication: Bronchospasm
     Dosage: 10 MILLIGRAM, ONCE A DAY
     Route: 048
     Dates: start: 20240409
  13. UMECLIDINIUM [Concomitant]
     Active Substance: UMECLIDINIUM
     Indication: Chronic obstructive pulmonary disease
     Dosage: 22 MICROGRAM, ONCE A DAY
     Route: 045
     Dates: start: 20230530
  14. NICOTINE [Concomitant]
     Active Substance: NICOTINE
     Indication: Product used for unknown indication
     Route: 065
     Dates: start: 20230810
  15. IPRATROPIUM BROMIDE [Concomitant]
     Active Substance: IPRATROPIUM BROMIDE
     Indication: Bronchospasm
     Dates: start: 20240402
  16. FOLIC ACID [Concomitant]
     Active Substance: FOLIC ACID
     Indication: Vitamin B12 deficiency
     Route: 048
     Dates: start: 20230523

REACTIONS (1)
  - Pyrexia [Recovered/Resolved]

NARRATIVE: CASE EVENT DATE: 20240607
